FAERS Safety Report 15651241 (Version 1)
Quarter: 2018Q4

REPORT INFORMATION
  Report Type: Spontaneous
  Country: SE (occurrence: SE)
  Receive Date: 20181123
  Receipt Date: 20181123
  Transmission Date: 20190205
  Serious: Yes (Hospitalization)
  Sender: FDA-Public Use
  Company Number: SE-TEVA-2018-SE-977479

PATIENT
  Age: 91 Year
  Sex: Male

DRUGS (2)
  1. ENALAPRIL [Suspect]
     Active Substance: ENALAPRIL
     Route: 065
     Dates: end: 201112
  2. METOPROLOL. [Suspect]
     Active Substance: METOPROLOL
     Route: 065
     Dates: end: 201112

REACTIONS (1)
  - Orthostatic hypotension [Unknown]

NARRATIVE: CASE EVENT DATE: 20111214
